FAERS Safety Report 4866407-3 (Version None)
Quarter: 2005Q4

REPORT INFORMATION
  Report Type: 
  Country: None (occurrence: None)
  Receive Date: 20051221
  Receipt Date: 20051214
  Transmission Date: 20060501
  Serious: Yes (Hospitalization, Disabling)
  Sender: FDA-Public Use
  Company Number: DEWYE967712SEP05

PATIENT
  Age: 33 Year
  Sex: Female

DRUGS (2)
  1. RAPAMUNE [Suspect]
     Indication: PROPHYLAXIS AGAINST TRANSPLANT REJECTION
     Dosage: 3 MG 1X PER 1 DAY
     Route: 048
     Dates: start: 20050414
  2. MYCOPHENOLATE MOFETIL (MYCOPHENOLATE MOFETIL) [Concomitant]

REACTIONS (6)
  - ARTERIOVENOUS FISTULA [None]
  - COMPLICATIONS OF TRANSPLANT SURGERY [None]
  - HAEMODIALYSIS [None]
  - KIDNEY TRANSPLANT REJECTION [None]
  - TRANSPLANT FAILURE [None]
  - URETERIC STENOSIS [None]
